FAERS Safety Report 5572172-7 (Version None)
Quarter: 2007Q4

REPORT INFORMATION
  Report Type: 
  Country: None (occurrence: None)
  Receive Date: 20071221
  Receipt Date: 20071218
  Transmission Date: 20080405
  Serious: Yes (Death, Hospitalization)
  Sender: FDA-Public Use
  Company Number: CG-MERCK-0712USA07995

PATIENT
  Age: 56 Year
  Sex: Male
  Weight: 56 kg

DRUGS (1)
  1. STROMECTOL [Suspect]
     Indication: ONCHOCERCIASIS
     Route: 048
     Dates: start: 20071128

REACTIONS (5)
  - CONJUNCTIVAL HAEMORRHAGE [None]
  - DEATH [None]
  - DIARRHOEA [None]
  - ENCEPHALOPATHY [None]
  - URINARY INCONTINENCE [None]
